FAERS Safety Report 6973459-3 (Version None)
Quarter: 2010Q3

REPORT INFORMATION
  Report Type: 
  Country: None (occurrence: None)
  Receive Date: 20100909
  Receipt Date: 20100825
  Transmission Date: 20110219
  Serious: No
  Sender: FDA-Public Use
  Company Number: US-PFIZER INC-2010107884

PATIENT
  Sex: Female
  Weight: 81.179 kg

DRUGS (4)
  1. LIPITOR [Suspect]
     Indication: BLOOD CHOLESTEROL INCREASED
     Dosage: 10 MG, 1X/DAY
     Route: 048
     Dates: start: 20080101, end: 20100816
  2. VALSARTAN [Concomitant]
     Indication: BLOOD PRESSURE INCREASED
     Dosage: UNK
  3. METOPROLOL [Concomitant]
     Dosage: 25 MG, UNK
  4. PLAVIX [Concomitant]
     Dosage: 75 MG, UNK

REACTIONS (2)
  - PRURITUS [None]
  - RASH [None]
